FAERS Safety Report 6375862-1 (Version None)
Quarter: 2009Q3

REPORT INFORMATION
  Report Type: 
  Country: None (occurrence: None)
  Receive Date: 20090924
  Receipt Date: 20090915
  Transmission Date: 20100115
  Serious: Yes (Life-Threatening, Hospitalization)
  Sender: FDA-Public Use
  Company Number: US-JNJFOC-20090706167

PATIENT
  Sex: Female
  Weight: 46.27 kg

DRUGS (2)
  1. REMICADE [Suspect]
     Route: 042
  2. REMICADE [Suspect]
     Indication: RHEUMATOID ARTHRITIS
     Route: 042

REACTIONS (13)
  - ASTHENIA [None]
  - CHEST PAIN [None]
  - CHILLS [None]
  - EATING DISORDER [None]
  - EPISTAXIS [None]
  - HEADACHE [None]
  - HYPERSENSITIVITY [None]
  - LUPUS-LIKE SYNDROME [None]
  - MALAISE [None]
  - MYALGIA [None]
  - NAUSEA [None]
  - PYREXIA [None]
  - VOMITING [None]
